FAERS Safety Report 22168624 (Version 4)
Quarter: 2023Q2

REPORT INFORMATION
  Report Type: Other
  Country: CA (occurrence: None)
  Receive Date: 20230403
  Receipt Date: 20230504
  Transmission Date: 20230722
  Serious: Yes (Hospitalization)
  Sender: FDA-Public Use
  Company Number: CA-ROCHE-3318026

PATIENT
  Age: 52 Year
  Sex: Male

DRUGS (1)
  1. OCREVUS [Suspect]
     Active Substance: OCRELIZUMAB
     Indication: Relapsing-remitting multiple sclerosis
     Dosage: 300 MG AT DAY 0 AND 14, THEN 600 MG EVERY 6 MONTH
     Route: 042
     Dates: start: 20200917

REACTIONS (6)
  - Wrist fracture [Recovered/Resolved]
  - Bone contusion [Recovered/Resolved]
  - Pneumothorax [Recovered/Resolved]
  - SARS-CoV-2 test positive [Recovered/Resolved]
  - Multiple sclerosis [Unknown]
  - Fall [Unknown]

NARRATIVE: CASE EVENT DATE: 20230104
